FAERS Safety Report 9239189 (Version 1)
Quarter: 2013Q2

REPORT INFORMATION
  Report Type: Spontaneous
  Country: FR (occurrence: FR)
  Receive Date: 20130418
  Receipt Date: 20130418
  Transmission Date: 20140414
  Serious: Yes (Other)
  Sender: FDA-Public Use
  Company Number: FR-MERCK-1304FRA006548

PATIENT
  Age: 47 Year
  Sex: Male
  Weight: 85 kg

DRUGS (6)
  1. VICTRELIS [Suspect]
     Indication: HEPATITIS C
     Dosage: 800 MG, TID
     Route: 048
     Dates: start: 20110317
  2. VIRAFERONPEG [Suspect]
     Indication: HEPATITIS C
     Dosage: 150 MICROGRAM, QW
     Route: 058
     Dates: start: 20110217
  3. REBETOL [Suspect]
     Indication: HEPATITIS C
     Dosage: 600 MG, BID
     Route: 048
     Dates: start: 20110217
  4. NEUPOGEN [Concomitant]
     Indication: NEUTROPENIA
     Dosage: 30 MG, BIW
     Dates: start: 20110217
  5. AVLOCARDYL [Concomitant]
     Indication: PROPHYLAXIS
     Dosage: 100 MG, QD
     Dates: start: 201001
  6. LEXOMIL [Concomitant]
     Indication: INSOMNIA
     Dosage: 1 DF, QD
     Dates: start: 2010

REACTIONS (2)
  - Neutropenia [Unknown]
  - Thrombocytopenia [Not Recovered/Not Resolved]
